FAERS Safety Report 17884153 (Version 1)
Quarter: 2020Q2

REPORT INFORMATION
  Report Type: Spontaneous
  Country: US (occurrence: US)
  Receive Date: 20200611
  Receipt Date: 20200611
  Transmission Date: 20200714
  Serious: Yes (Disabling, Other)
  Sender: FDA-Public Use
  Company Number: None

PATIENT
  Age: 42 Year
  Sex: Female
  Weight: 47.25 kg

DRUGS (18)
  1. CONCERTA [Concomitant]
     Active Substance: METHYLPHENIDATE HYDROCHLORIDE
  2. CLONIDINE. [Concomitant]
     Active Substance: CLONIDINE
  3. LEVSIN [Concomitant]
     Active Substance: HYOSCYAMINE SULFATE
  4. GABAPENTIN. [Suspect]
     Active Substance: GABAPENTIN
     Indication: FIBROMYALGIA
     Dosage: ?          QUANTITY:1 CAPSULE(S);?
     Route: 048
     Dates: start: 20200606, end: 20200609
  5. GABAPENTIN. [Suspect]
     Active Substance: GABAPENTIN
     Indication: PAIN
     Dosage: ?          QUANTITY:1 CAPSULE(S);?
     Route: 048
     Dates: start: 20200606, end: 20200609
  6. DULERA [Concomitant]
     Active Substance: FORMOTEROL FUMARATE DIHYDRATE\MOMETASONE FUROATE
  7. DULOXETINE. [Concomitant]
     Active Substance: DULOXETINE
  8. VITAMIN B [Concomitant]
     Active Substance: VITAMIN B
  9. FLONASE [Concomitant]
     Active Substance: FLUTICASONE PROPIONATE
  10. ALPRAZOLAM. [Concomitant]
     Active Substance: ALPRAZOLAM
  11. IBUPROFEN. [Concomitant]
     Active Substance: IBUPROFEN
  12. CROMOLYN SODIUUM NASAL SPRAY [Concomitant]
  13. VITAMIN D [Concomitant]
     Active Substance: VITAMIN D NOS
  14. TYLENOL [Concomitant]
     Active Substance: ACETAMINOPHEN
  15. DAILY VITAMINS [Concomitant]
     Active Substance: VITAMINS
  16. GABAPENTIN. [Suspect]
     Active Substance: GABAPENTIN
     Indication: SEIZURE
     Dosage: ?          QUANTITY:1 CAPSULE(S);?
     Route: 048
     Dates: start: 20200606, end: 20200609
  17. ALBUTEROL. [Concomitant]
     Active Substance: ALBUTEROL
  18. SYMBICORT [Concomitant]
     Active Substance: BUDESONIDE\FORMOTEROL FUMARATE DIHYDRATE

REACTIONS (15)
  - Anxiety [None]
  - Fatigue [None]
  - Frustration tolerance decreased [None]
  - Anger [None]
  - Fear [None]
  - Pain [None]
  - Condition aggravated [None]
  - Paraesthesia [None]
  - Depressed mood [None]
  - Hypoaesthesia [None]
  - Loss of personal independence in daily activities [None]
  - Irritability [None]
  - Pain in extremity [None]
  - Gait inability [None]
  - Crying [None]

NARRATIVE: CASE EVENT DATE: 20200608
